FAERS Safety Report 7034931-3 (Version None)
Quarter: 2010Q4

REPORT INFORMATION
  Report Type: 
  Country: None (occurrence: None)
  Receive Date: 20101008
  Receipt Date: 20100927
  Transmission Date: 20110411
  Serious: Yes (Other)
  Sender: FDA-Public Use
  Company Number: US-SANOFI-AVENTIS-2010SA058645

PATIENT
  Age: 79 Year
  Sex: Female
  Weight: 68 kg

DRUGS (2)
  1. PLAVIX [Suspect]
     Route: 048
     Dates: start: 20050101
  2. THYROID THERAPY [Concomitant]
     Route: 048

REACTIONS (2)
  - BLINDNESS [None]
  - CATARACT [None]
